FAERS Safety Report 16441521 (Version 1)
Quarter: 2019Q2

REPORT INFORMATION
  Report Type: Spontaneous
  Country: US (occurrence: US)
  Receive Date: 20190617
  Receipt Date: 20190617
  Transmission Date: 20190711
  Serious: Yes (Other)
  Sender: FDA-Public Use
  Company Number: US-BEH-2019103092

PATIENT
  Age: 61 Year
  Sex: Female

DRUGS (9)
  1. PRE-FILLED SYRINGE (DEVICE) [Suspect]
     Active Substance: DEVICE
     Indication: IMMUNODEFICIENCY
     Dosage: 8 GRAM, QW
     Route: 065
     Dates: start: 20171024
  2. BUDESONIDE. [Concomitant]
     Active Substance: BUDESONIDE
     Route: 065
  3. SYNTHROID [Concomitant]
     Active Substance: LEVOTHYROXINE SODIUM
     Route: 065
  4. HYDROCODONE BITARTRATE AND CHLORPHENIRAMINE MALEATE [Concomitant]
     Active Substance: CHLORPHENIRAMINE MALEATE\HYDROCODONE BITARTRATE
     Route: 065
  5. TRIAMTERENE AND HYDROCHLOROTHIAZIDE [Concomitant]
     Active Substance: HYDROCHLOROTHIAZIDE\TRIAMTERENE
     Route: 065
  6. LIOTHYRONINE [Concomitant]
     Active Substance: LIOTHYRONINE
     Route: 065
  7. ROSUVASTATIN. [Concomitant]
     Active Substance: ROSUVASTATIN
     Route: 065
  8. TRAZODONE [Concomitant]
     Active Substance: TRAZODONE HYDROCHLORIDE
     Route: 065
  9. PRE-FILLED SYRINGE (DEVICE) [Suspect]
     Active Substance: DEVICE
     Dosage: UNK

REACTIONS (3)
  - Product dose omission [Unknown]
  - Pneumonia [Not Recovered/Not Resolved]
  - No adverse event [Unknown]
